FAERS Safety Report 8463424-1 (Version None)
Quarter: 2012Q2

REPORT INFORMATION
  Report Type: 
  Country: None (occurrence: None)
  Receive Date: 20120625
  Receipt Date: 20120621
  Transmission Date: 20120825
  Serious: Yes (Hospitalization)
  Sender: FDA-Public Use
  Company Number: US-MERCK-1206USA01507

PATIENT
  Age: 75 Year
  Sex: Female
  Weight: 68 kg

DRUGS (7)
  1. METFORMIN [Concomitant]
     Indication: DIABETES MELLITUS
     Route: 065
  2. LEVOXYL [Suspect]
     Route: 065
     Dates: start: 20120212
  3. ACETAMINOPHEN [Concomitant]
     Indication: OSTEOARTHRITIS
     Route: 065
     Dates: start: 20100601
  4. ADVAIR DISKUS 100/50 [Suspect]
     Indication: ASTHMA
     Route: 065
     Dates: start: 20100601, end: 20120101
  5. SINGULAIR [Suspect]
     Indication: ASTHMA
     Route: 048
     Dates: end: 20120101
  6. ACETAMINOPHEN [Concomitant]
     Indication: ARTHRALGIA
     Route: 065
     Dates: start: 20100601
  7. LEVOXYL [Suspect]
     Indication: THYROID DISORDER
     Route: 065

REACTIONS (5)
  - ADVERSE EVENT [None]
  - ATRIAL FIBRILLATION [None]
  - THYROXINE INCREASED [None]
  - HYPERTENSION [None]
  - BLOOD CHOLESTEROL INCREASED [None]
